FAERS Safety Report 7754562-7 (Version None)
Quarter: 2011Q3

REPORT INFORMATION
  Report Type: 
  Country: None (occurrence: None)
  Receive Date: 20110915
  Receipt Date: 20000229
  Transmission Date: 20111222
  Serious: Yes (Death)
  Sender: FDA-Public Use
  Company Number: US-BAYER-200002376GDS

PATIENT

DRUGS (3)
  1. CIPROFLOXACIN [Suspect]
  2. AMPICILLIN SODIUM [Concomitant]
  3. AMOXICILLIN [Concomitant]

REACTIONS (1)
  - DEATH [None]
